FAERS Safety Report 21254373 (Version 1)
Quarter: 2022Q3

REPORT INFORMATION
  Report Type: Spontaneous
  Country: NL (occurrence: NL)
  Receive Date: 20220825
  Receipt Date: 20220825
  Transmission Date: 20221026
  Serious: Yes (Other)
  Sender: FDA-Public Use
  Company Number: NL-MYLANLABS-2022M1088567

PATIENT
  Sex: Male

DRUGS (9)
  1. LEVETIRACETAM [Suspect]
     Active Substance: LEVETIRACETAM
     Indication: Epileptic encephalopathy
     Dosage: UNK
     Route: 065
  2. PHENOBARBITAL [Suspect]
     Active Substance: PHENOBARBITAL
     Indication: Epileptic encephalopathy
     Dosage: UNK
     Route: 065
  3. MIDAZOLAM [Suspect]
     Active Substance: MIDAZOLAM
     Indication: Epileptic encephalopathy
     Dosage: UNK
     Route: 042
  4. PHENYTOIN [Suspect]
     Active Substance: PHENYTOIN
     Indication: Epileptic encephalopathy
     Dosage: UNK
     Route: 065
  5. PYRIDOXINE [Suspect]
     Active Substance: PYRIDOXINE
     Indication: Epileptic encephalopathy
     Dosage: 15 MILLIGRAM/KILOGRAM, QD
     Route: 042
  6. PYRIDOXINE [Suspect]
     Active Substance: PYRIDOXINE
     Dosage: 30 MILLIGRAM/KILOGRAM, QD
     Route: 042
  7. PYRIDOXAL PHOSPHATE ANHYDROUS [Concomitant]
     Active Substance: PYRIDOXAL PHOSPHATE ANHYDROUS
     Indication: Epileptic encephalopathy
     Dosage: 30 MILLIGRAM/KILOGRAM, QD (THROUGH NASOGASTRIC..)
     Route: 045
  8. PYRIDOXAL PHOSPHATE ANHYDROUS [Concomitant]
     Active Substance: PYRIDOXAL PHOSPHATE ANHYDROUS
     Dosage: 74 MILLIGRAM/KILOGRAM, QD (EXCEEDED THE..)
     Route: 045
  9. PYRIDOXAL PHOSPHATE ANHYDROUS [Concomitant]
     Active Substance: PYRIDOXAL PHOSPHATE ANHYDROUS
     Dosage: 31 MILLIGRAM/KILOGRAM, QD
     Route: 045

REACTIONS (1)
  - Drug ineffective [Unknown]
